FAERS Safety Report 23882788 (Version 1)
Quarter: 2024Q2

REPORT INFORMATION
  Report Type: Other
  Country: US (occurrence: US)
  Receive Date: 20240522
  Receipt Date: 20240522
  Transmission Date: 20240716
  Serious: Yes (Death)
  Sender: FDA-Public Use
  Company Number: US-Bion-013094

PATIENT
  Age: 77 Year
  Sex: Female

DRUGS (5)
  1. AZITHROMYCIN [Suspect]
     Active Substance: AZITHROMYCIN
     Indication: Disseminated mycobacterium avium complex infection
  2. ETHAMBUTOL [Concomitant]
     Active Substance: ETHAMBUTOL HYDROCHLORIDE
     Indication: Disseminated mycobacterium avium complex infection
  3. RIFAMPIN [Concomitant]
     Active Substance: RIFAMPIN
     Indication: Disseminated mycobacterium avium complex infection
  4. RIFABUTIN [Concomitant]
     Active Substance: RIFABUTIN
     Indication: Disseminated mycobacterium avium complex infection
  5. CLARITHROMYCIN [Concomitant]
     Active Substance: CLARITHROMYCIN
     Indication: Disseminated mycobacterium avium complex infection

REACTIONS (1)
  - Treatment failure [Fatal]
